FAERS Safety Report 6239190-7 (Version None)
Quarter: 2009Q2

REPORT INFORMATION
  Report Type: 
  Country: None (occurrence: None)
  Receive Date: 20090617
  Receipt Date: 20080325
  Transmission Date: 20091009
  Serious: No
  Sender: FDA-Public Use
  Company Number: 273616

PATIENT
  Age: 43 Year
  Sex: Female

DRUGS (4)
  1. LEVEMIR [Suspect]
     Indication: TYPE 2 DIABETES MELLITUS
     Dosage: 100 U, QID, SUBCUTANEOUS ; 125 U, QID, SUBCUTANEOUS
     Route: 058
     Dates: start: 20071001, end: 20080301
  2. LEVEMIR [Suspect]
     Indication: TYPE 2 DIABETES MELLITUS
     Dosage: 100 U, QID, SUBCUTANEOUS ; 125 U, QID, SUBCUTANEOUS
     Route: 058
     Dates: start: 20080301
  3. NOVOLOG [Concomitant]
  4. ATENOLOL [Concomitant]

REACTIONS (1)
  - BLOOD GLUCOSE INCREASED [None]
